FAERS Safety Report 5189015-6 (Version None)
Quarter: 2006Q4

REPORT INFORMATION
  Report Type: 
  Country: None (occurrence: None)
  Receive Date: 20061215
  Receipt Date: 20061213
  Transmission Date: 20070319
  Serious: Yes (Death)
  Sender: FDA-Public Use
  Company Number: 0612-864

PATIENT
  Age: 2 Day

DRUGS (1)
  1. CUROSURF [Suspect]
     Indication: RESPIRATORY DISTRESS

REACTIONS (2)
  - NEONATAL DISORDER [None]
  - PULMONARY FUNCTION TEST DECREASED [None]
